FAERS Safety Report 10047552 (Version 1)
Quarter: 2014Q1

REPORT INFORMATION
  Report Type: Report from Study
  Country: CA (occurrence: CA)
  Receive Date: 20140331
  Receipt Date: 20140331
  Transmission Date: 20141002
  Serious: Yes (Other)
  Sender: FDA-Public Use
  Company Number: CA-JNJFOC-20140314013

PATIENT
  Age: 50 Year
  Sex: Female
  Weight: 84 kg

DRUGS (2)
  1. REMICADE [Suspect]
     Indication: COLITIS ULCERATIVE
     Route: 042
     Dates: start: 201203
  2. IRON [Concomitant]
     Route: 048

REACTIONS (3)
  - Vaginal haemorrhage [Unknown]
  - Haemoglobin abnormal [Unknown]
  - Abdominal pain [Unknown]
